FAERS Safety Report 5369992-0 (Version None)
Quarter: 2007Q2

REPORT INFORMATION
  Report Type: 
  Country: None (occurrence: None)
  Receive Date: 20070626
  Receipt Date: 20070619
  Transmission Date: 20071010
  Serious: Yes (Other)
  Sender: FDA-Public Use
  Company Number: PHBS2007ES10430

PATIENT
  Age: 32 Year
  Sex: Female

DRUGS (3)
  1. CARBAMAZEPINE [Suspect]
  2. CLONAZEPAM [Concomitant]
  3. REBUXETINE [Concomitant]

REACTIONS (5)
  - HYPERTRICHOSIS [None]
  - PORPHYRIA NON-ACUTE [None]
  - PORPHYRINS URINE INCREASED [None]
  - SKIN EROSION [None]
  - URINE COLOUR ABNORMAL [None]
